FAERS Safety Report 7606731-4 (Version None)
Quarter: 2011Q3

REPORT INFORMATION
  Report Type: 
  Country: None (occurrence: None)
  Receive Date: 20110713
  Receipt Date: 20110708
  Transmission Date: 20111222
  Serious: Yes (Other)
  Sender: FDA-Public Use
  Company Number: GB-MERCK-1106GBR00055

PATIENT
  Age: 56 Year
  Sex: Female

DRUGS (6)
  1. ATORVASTATIN [Suspect]
     Route: 065
     Dates: start: 20051228
  2. ZOCOR [Suspect]
     Route: 048
     Dates: start: 20050505
  3. ROSUVASTATIN CALCIUM [Concomitant]
     Route: 065
  4. FENOFIBRATE [Concomitant]
     Route: 065
  5. METFORMIN [Concomitant]
     Route: 065
  6. PRAVASTATIN SODIUM [Concomitant]
     Route: 065

REACTIONS (3)
  - APOLIPOPROTEIN A-I DECREASED [None]
  - HIGH DENSITY LIPOPROTEIN DECREASED [None]
  - MYALGIA [None]
